FAERS Safety Report 6639472-0 (Version None)
Quarter: 2010Q1

REPORT INFORMATION
  Report Type: 
  Country: None (occurrence: None)
  Receive Date: 20100318
  Receipt Date: 20100303
  Transmission Date: 20100710
  Serious: Yes (Other)
  Sender: FDA-Public Use
  Company Number: US-CELGENEUS-163-21880-10030558

PATIENT
  Sex: Male

DRUGS (2)
  1. REVLIMID [Suspect]
     Indication: MULTIPLE MYELOMA
     Route: 048
     Dates: start: 20090713, end: 20100217
  2. REVLIMID [Suspect]
     Route: 048
     Dates: start: 20100305

REACTIONS (2)
  - DIARRHOEA [None]
  - SKIN CANCER [None]
